FAERS Safety Report 5268203-4 (Version None)
Quarter: 2007Q1

REPORT INFORMATION
  Report Type: 
  Country: None (occurrence: None)
  Receive Date: 20070319
  Receipt Date: 20070313
  Transmission Date: 20070707
  Serious: Yes (Hospitalization)
  Sender: FDA-Public Use
  Company Number: US-BRISTOL-MYERS SQUIBB COMPANY-13235155

PATIENT
  Age: 75 Year
  Sex: Female

DRUGS (14)
  1. CETUXIMAB [Suspect]
     Indication: NON-SMALL CELL LUNG CANCER
     Route: 042
     Dates: start: 20051201, end: 20051201
  2. CARBOPLATIN [Suspect]
     Indication: NON-SMALL CELL LUNG CANCER
     Dosage: THERAPY INITIATED 01-DEC-2005.
     Route: 042
     Dates: start: 20051222, end: 20051222
  3. DOCETAXEL [Suspect]
     Indication: NON-SMALL CELL LUNG CANCER
     Dosage: THERAPY INITIATED 01-DEC-2005.
     Route: 042
     Dates: start: 20051222, end: 20051222
  4. ATENOLOL [Concomitant]
     Dates: start: 19950101
  5. HYDROCHLOROTHIAZIDE [Concomitant]
     Indication: HYPERTENSION
     Dates: start: 19950101
  6. MOBIC [Concomitant]
     Indication: HYPERTENSION
     Dates: start: 19950101
  7. DARVOCET-N 100 [Concomitant]
     Indication: BACK PAIN
     Dates: start: 20050801
  8. ACETAMINOPHEN [Concomitant]
     Indication: BACK PAIN
     Dates: start: 19950801
  9. KYTRIL [Concomitant]
     Indication: NAUSEA
     Dates: start: 20051202
  10. ALOXI [Concomitant]
     Indication: PREMEDICATION
     Dates: start: 20051201
  11. DEXAMETHASONE [Concomitant]
     Indication: PREMEDICATION
     Dates: start: 20051101
  12. DECADRON [Concomitant]
     Indication: PREMEDICATION
     Dates: start: 20051201
  13. BENADRYL [Concomitant]
     Indication: PREMEDICATION
     Route: 042
     Dates: start: 20051201
  14. WARFARIN SODIUM [Concomitant]
     Indication: PROPHYLAXIS
     Dates: start: 20051201

REACTIONS (4)
  - DEHYDRATION [None]
  - NAUSEA [None]
  - URINARY TRACT INFECTION [None]
  - VOMITING [None]
